FAERS Safety Report 4782702-0 (Version None)
Quarter: 2005Q3

REPORT INFORMATION
  Report Type: 
  Country: None (occurrence: None)
  Receive Date: 20050929
  Receipt Date: 20050728
  Transmission Date: 20060218
  Serious: No
  Sender: FDA-Public Use
  Company Number: 412690

PATIENT
  Age: 24 Year
  Sex: Male

DRUGS (1)
  1. COREG [Suspect]
     Indication: DRUG USE FOR UNKNOWN INDICATION
     Route: 048

REACTIONS (5)
  - ALOPECIA [None]
  - BLOOD PRESSURE ABNORMAL [None]
  - ERECTILE DYSFUNCTION [None]
  - OVERWEIGHT [None]
  - PENIS DISORDER [None]
